FAERS Safety Report 7345985-9 (Version None)
Quarter: 2011Q1

REPORT INFORMATION
  Report Type: 
  Country: None (occurrence: None)
  Receive Date: 20110308
  Receipt Date: 20110308
  Transmission Date: 20110831
  Serious: Yes (Other)
  Sender: FDA-Public Use
  Company Number: None

PATIENT
  Age: 69 Year
  Sex: Female
  Weight: 61.2356 kg

DRUGS (10)
  1. SYNTHROID [Concomitant]
  2. LIPITOR [Concomitant]
  3. PROTONIX [Concomitant]
  4. ASPIRIN [Concomitant]
  5. CHANTIX [Suspect]
     Indication: SMOKING CESSATION THERAPY
     Dosage: ONE TWICE DAY PO
     Route: 048
     Dates: start: 20101010, end: 20101017
  6. PROCARDIA [Concomitant]
  7. TOPROL-XL [Concomitant]
  8. CHANTIX [Suspect]
     Indication: SMOKING CESSATION THERAPY
     Dosage: ONE TWICE A DAY PO
     Route: 048
     Dates: start: 20110103, end: 20110113
  9. CALCIUM [Concomitant]
  10. VALIUM [Concomitant]

REACTIONS (4)
  - INSOMNIA [None]
  - NAUSEA [None]
  - ABNORMAL DREAMS [None]
  - HALLUCINATION, AUDITORY [None]
